FAERS Safety Report 9763627 (Version 1)
Quarter: 2013Q4

REPORT INFORMATION
  Report Type: Spontaneous
  Country: US (occurrence: US)
  Receive Date: 20131216
  Receipt Date: 20131216
  Transmission Date: 20140711
  Serious: No
  Sender: FDA-Public Use
  Company Number: US-BIOGENIDEC-2013BI108339

PATIENT
  Age: 48 Year
  Sex: Male

DRUGS (8)
  1. TECFIDERA [Suspect]
     Indication: MULTIPLE SCLEROSIS
     Route: 048
     Dates: start: 20131015
  2. DEXAMETHASONE [Concomitant]
  3. DEPAKOTE [Concomitant]
  4. SYNTHROID [Concomitant]
  5. NORVASC [Concomitant]
  6. ECOTRIN [Concomitant]
  7. ADVIL [Concomitant]
  8. PEPCID [Concomitant]

REACTIONS (1)
  - Abdominal discomfort [Unknown]
